FAERS Safety Report 8999770 (Version 2)
Quarter: 2013Q4

REPORT INFORMATION
  Report Type: Spontaneous
  Country: JP (occurrence: JP)
  Receive Date: 20130102
  Receipt Date: 20131024
  Transmission Date: 20140711
  Serious: Yes (Hospitalization, Other)
  Sender: FDA-Public Use
  Company Number: PHHY2012JP117691

PATIENT
  Age: 61 Year
  Sex: Male

DRUGS (5)
  1. NEORAL [Suspect]
     Indication: KIDNEY TRANSPLANT REJECTION
     Dosage: 6 MG/KG, PER DAY
     Route: 048
     Dates: start: 1993
  2. NEORAL [Suspect]
     Dosage: 3 MG/KG, PER DAY
     Route: 048
  3. PREDNISOLONE [Suspect]
     Indication: RENAL TRANSPLANT
  4. AZATHIOPRINE [Suspect]
     Indication: RENAL TRANSPLANT
     Route: 048
  5. ADRENAL CORTEX PREPARATIONS [Concomitant]

REACTIONS (5)
  - Lymphoma [Recovering/Resolving]
  - Lymphadenopathy [Recovered/Resolved]
  - Rectal cancer [Recovering/Resolving]
  - Tongue neoplasm malignant stage unspecified [Recovering/Resolving]
  - Stomatitis [Recovered/Resolved]
